FAERS Safety Report 8512021-8 (Version None)
Quarter: 2012Q3

REPORT INFORMATION
  Report Type: 
  Country: None (occurrence: None)
  Receive Date: 20120716
  Receipt Date: 20120713
  Transmission Date: 20120928
  Serious: Yes (Death, Other)
  Sender: FDA-Public Use
  Company Number: PHHY2011JP88413

PATIENT
  Age: 69 Year
  Sex: Male

DRUGS (1)
  1. NEORAL [Suspect]
     Indication: APLASIA PURE RED CELL
     Route: 048

REACTIONS (9)
  - GENERALISED OEDEMA [None]
  - PLEURAL EFFUSION [None]
  - WEIGHT INCREASED [None]
  - BONE MARROW FAILURE [None]
  - NEOPLASM MALIGNANT [None]
  - GASTROINTESTINAL DISORDER [None]
  - INFECTION [None]
  - RENAL IMPAIRMENT [None]
  - FLUID RETENTION [None]
